FAERS Safety Report 18038609 (Version 2)
Quarter: 2020Q3

REPORT INFORMATION
  Report Type: Spontaneous
  Country: US (occurrence: US)
  Receive Date: 20200717
  Receipt Date: 20200723
  Transmission Date: 20201103
  Serious: No
  Sender: FDA-Public Use
  Company Number: US-PFIZER INC-2020272431

PATIENT
  Age: 63 Year
  Sex: Female

DRUGS (5)
  1. TYLENOL [Concomitant]
     Active Substance: ACETAMINOPHEN
     Dosage: UNK
  2. STOOL SOFTENER (DOCUSATE) [Concomitant]
     Active Substance: DOCUSATE
     Dosage: UNK
  3. BRAFTOVI [Suspect]
     Active Substance: ENCORAFENIB
     Dosage: 300 MG, 1X/DAY
     Route: 048
  4. LISINOPRIL. [Concomitant]
     Active Substance: LISINOPRIL
     Dosage: UNK
  5. BRAFTOVI [Suspect]
     Active Substance: ENCORAFENIB
     Indication: COLON CANCER
     Dosage: 450 MG, DAILY
     Route: 048
     Dates: start: 20200629

REACTIONS (7)
  - Rash [Recovered/Resolved]
  - Pain in extremity [Unknown]
  - Blister [Recovering/Resolving]
  - Pruritus [Unknown]
  - Constipation [Unknown]
  - Rash erythematous [Unknown]
  - Back pain [Unknown]

NARRATIVE: CASE EVENT DATE: 20200705
